APPROVED DRUG PRODUCT: THALLOUS CHLORIDE TL 201
Active Ingredient: THALLOUS CHLORIDE TL-201
Strength: 1mCi/ML
Dosage Form/Route: INJECTABLE;INJECTION
Application: N018110 | Product #002
Applicant: GE HEALTHCARE
Approved: Feb 27, 1996 | RLD: Yes | RS: No | Type: DISCN